FAERS Safety Report 24528605 (Version 1)
Quarter: 2024Q4

REPORT INFORMATION
  Report Type: Spontaneous
  Country: US (occurrence: None)
  Receive Date: 20241018
  Receipt Date: 20241018
  Transmission Date: 20250114
  Serious: Yes (unspecified)
  Sender: Public
  Company Number: None

PATIENT
  Age: 81 Year
  Sex: Male

DRUGS (10)
  1. REPATHA [Suspect]
     Active Substance: EVOLOCUMAB
     Indication: Hyperlipidaemia
     Dosage: FREQUENCY : WEEKLY;?
     Route: 058
     Dates: start: 20211110
  2. ASPIRIN 81 MG EC LOW DOSE TABLETS [Concomitant]
  3. PLAVIX 75MG TABLETS [Concomitant]
  4. CO-O10 100MG SOFTGEL CAPSULES [Concomitant]
  5. OMEGA-3 1 000MG CAPSULES [Concomitant]
  6. HYDROCHLOROTHIAZIDE\IRBESARTAN [Concomitant]
     Active Substance: HYDROCHLOROTHIAZIDE\IRBESARTAN
  7. CLOPIDOGREL [Concomitant]
  8. ASPIRIN [Concomitant]
  9. GABAPENTIN [Concomitant]
  10. BETAMETHASONE\CLOTRIMAZOLE [Concomitant]
     Active Substance: BETAMETHASONE\CLOTRIMAZOLE

REACTIONS (2)
  - Obstruction [None]
  - Nonspecific reaction [None]
